FAERS Safety Report 6697593-0 (Version None)
Quarter: 2010Q2

REPORT INFORMATION
  Report Type: 
  Country: None (occurrence: None)
  Receive Date: 20100426
  Receipt Date: 20091130
  Transmission Date: 20101027
  Serious: No
  Sender: FDA-Public Use
  Company Number: US-ABBOTT-09P-163-0605922-00

PATIENT
  Sex: Female
  Weight: 74.91 kg

DRUGS (12)
  1. AZMACORT [Suspect]
     Indication: CARDIAC FAILURE CONGESTIVE
     Route: 055
     Dates: start: 20091023, end: 20091023
  2. AZMACORT [Suspect]
     Indication: EMPHYSEMA
  3. ZOCOR [Concomitant]
     Indication: BLOOD CHOLESTEROL INCREASED
  4. PACERONE [Concomitant]
     Indication: CARDIAC FAILURE CONGESTIVE
  5. BISOPROLOL [Concomitant]
     Indication: CARDIAC FAILURE CONGESTIVE
     Dosage: 2.5 TO 6.25MG
  6. BISOPROLOL [Concomitant]
     Indication: HYPERTENSION
  7. LEVOTHYROXINE [Concomitant]
     Indication: HYPOTHYROIDISM
  8. EYE DROPS [Concomitant]
     Indication: OCULAR VASCULAR DISORDER
     Dosage: UNKNOWN
     Route: 047
  9. ALBUTEROL [Concomitant]
     Indication: CARDIAC FAILURE CONGESTIVE
     Route: 055
  10. ALBUTEROL [Concomitant]
     Indication: EMPHYSEMA
  11. COMBIVENT [Concomitant]
     Indication: CARDIAC FAILURE CONGESTIVE
     Route: 055
  12. COMBIVENT [Concomitant]
     Indication: EMPHYSEMA

REACTIONS (3)
  - ASTHENIA [None]
  - GAIT DISTURBANCE [None]
  - TREMOR [None]
